FAERS Safety Report 25993216 (Version 2)
Quarter: 2025Q4

REPORT INFORMATION
  Report Type: Spontaneous
  Country: US (occurrence: US)
  Receive Date: 20251104
  Receipt Date: 20251125
  Transmission Date: 20260117
  Serious: Yes (Other)
  Sender: TEVA
  Company Number: US-TEVA-VS-3387207

PATIENT
  Age: 66 Year
  Sex: Male

DRUGS (1)
  1. BETAMETHASONE\CLOTRIMAZOLE [Suspect]
     Active Substance: BETAMETHASONE\CLOTRIMAZOLE
     Indication: Intertrigo
     Route: 061

REACTIONS (6)
  - Topical steroid withdrawal reaction [Unknown]
  - Blister [Unknown]
  - Pain [Unknown]
  - Skin atrophy [Unknown]
  - Product dose omission issue [Unknown]
  - Haemorrhage [Unknown]
